FAERS Safety Report 5306638-1 (Version None)
Quarter: 2007Q2

REPORT INFORMATION
  Report Type: 
  Country: None (occurrence: None)
  Receive Date: 20070424
  Receipt Date: 20070412
  Transmission Date: 20071010
  Serious: Yes (Other)
  Sender: FDA-Public Use
  Company Number: US-PFIZER INC-2007029749

PATIENT

DRUGS (3)
  1. CHANTIX [Suspect]
  2. SYNTHROID [Concomitant]
  3. ELMIRON [Concomitant]

REACTIONS (3)
  - DERMATITIS EXFOLIATIVE [None]
  - ERYTHEMA MULTIFORME [None]
  - HYPERSENSITIVITY [None]
